FAERS Safety Report 10841488 (Version 2)
Quarter: 2015Q1

REPORT INFORMATION
  Report Type: Spontaneous
  Country: AT (occurrence: AT)
  Receive Date: 20150220
  Receipt Date: 20150227
  Transmission Date: 20150721
  Serious: No
  Sender: FDA-Public Use
  Company Number: AT-009507513-1502AUT008379

PATIENT
  Age: 9 Year
  Sex: Male

DRUGS (1)
  1. GRAZAX [Suspect]
     Active Substance: PHLEUM PRATENSE POLLEN
     Dosage: 75.000 SQ-T; DAILY
     Route: 060

REACTIONS (6)
  - Bradycardia [Recovered/Resolved]
  - Malaise [Recovered/Resolved]
  - Headache [Recovered/Resolved]
  - Hypersensitivity [Recovered/Resolved]
  - Dyspnoea [Recovered/Resolved]
  - Vomiting [Recovered/Resolved]
